FAERS Safety Report 14959971 (Version 1)
Quarter: 2018Q2

REPORT INFORMATION
  Report Type: Spontaneous
  Country: BE (occurrence: BE)
  Receive Date: 20180531
  Receipt Date: 20180531
  Transmission Date: 20180711
  Serious: Yes (Death, Other)
  Sender: FDA-Public Use
  Company Number: BE-GILEAD-2018-0341468

PATIENT
  Age: 54 Year
  Sex: Male

DRUGS (1)
  1. EPCLUSA [Suspect]
     Active Substance: SOFOSBUVIR\VELPATASVIR
     Indication: CHRONIC HEPATITIS C
     Dosage: UNK, DURATION 12 WEEKS
     Route: 065
     Dates: start: 20180215

REACTIONS (1)
  - Death [Fatal]

NARRATIVE: CASE EVENT DATE: 20180319
